FAERS Safety Report 8500363-1 (Version None)
Quarter: 2012Q3

REPORT INFORMATION
  Report Type: 
  Country: None (occurrence: None)
  Receive Date: 20120710
  Receipt Date: 20120702
  Transmission Date: 20120928
  Serious: Yes (Other)
  Sender: FDA-Public Use
  Company Number: US-JNJFOC-20120701535

PATIENT
  Sex: Female
  Weight: 56.7 kg

DRUGS (5)
  1. THYROID TAB [Concomitant]
     Route: 065
     Dates: start: 20120101
  2. ROGAINE [Suspect]
     Indication: HAIR GROWTH ABNORMAL
     Route: 061
     Dates: start: 20120501, end: 20120601
  3. MINOXIDIL [Suspect]
     Route: 061
  4. MINOXIDIL [Suspect]
     Indication: HAIR GROWTH ABNORMAL
     Dosage: HALF CAP
     Route: 061
     Dates: start: 20120401, end: 20120501
  5. ROGAINE [Suspect]
     Route: 061

REACTIONS (10)
  - DANDRUFF [None]
  - RASH PRURITIC [None]
  - PRODUCT LABEL ISSUE [None]
  - CACHEXIA [None]
  - WRONG DRUG ADMINISTERED [None]
  - HYPERTENSION [None]
  - PRESYNCOPE [None]
  - HYPOTENSION [None]
  - HEART RATE IRREGULAR [None]
  - DARK CIRCLES UNDER EYES [None]
